FAERS Safety Report 8450504-X (Version None)
Quarter: 2012Q2

REPORT INFORMATION
  Report Type: 
  Country: None (occurrence: None)
  Receive Date: 20120620
  Receipt Date: 20120607
  Transmission Date: 20120825
  Serious: No
  Sender: FDA-Public Use
  Company Number: US-ASTRAZENECA-2011SE45574

PATIENT
  Age: 51 Year
  Sex: Male

DRUGS (1)
  1. NEXIUM [Suspect]
     Indication: ABDOMINAL DISCOMFORT
     Route: 048

REACTIONS (4)
  - ABDOMINAL PAIN UPPER [None]
  - APHAGIA [None]
  - REGURGITATION [None]
  - DRUG DOSE OMISSION [None]
